FAERS Safety Report 11271521 (Version 1)
Quarter: 2015Q3

REPORT INFORMATION
  Report Type: Spontaneous
  Country: US (occurrence: US)
  Receive Date: 20150714
  Receipt Date: 20150714
  Transmission Date: 20151125
  Serious: Yes (Other)
  Sender: FDA-Public Use
  Company Number: US-ROCHE-1576463

PATIENT
  Age: 67 Year
  Sex: Female
  Weight: 128.4 kg

DRUGS (7)
  1. HERCEPTIN [Suspect]
     Active Substance: TRASTUZUMAB
     Dosage: 3RD CYCLE
     Route: 042
     Dates: start: 20150422, end: 20150507
  2. DEXAMETHASONE. [Concomitant]
     Active Substance: DEXAMETHASONE
     Route: 042
     Dates: start: 20150225, end: 20150507
  3. BENADRYL [Concomitant]
     Active Substance: DIPHENHYDRAMINE HYDROCHLORIDE
     Route: 042
     Dates: start: 20150225, end: 20150507
  4. PERJETA [Suspect]
     Active Substance: PERTUZUMAB
     Indication: BREAST CANCER METASTATIC
     Route: 042
     Dates: start: 20150225, end: 20150507
  5. ACETAMINOPHEN. [Concomitant]
     Active Substance: ACETAMINOPHEN
     Route: 048
     Dates: start: 20150225, end: 20150507
  6. HERCEPTIN [Suspect]
     Active Substance: TRASTUZUMAB
     Indication: BREAST CANCER
     Route: 042
     Dates: start: 20150225, end: 20150507
  7. PERJETA [Suspect]
     Active Substance: PERTUZUMAB
     Dosage: 3RD CYCLE
     Route: 042
     Dates: start: 20150422, end: 20150507

REACTIONS (11)
  - Nausea [Unknown]
  - Pharyngeal oedema [Recovered/Resolved]
  - Anaphylactic reaction [Recovered/Resolved]
  - Hyperhidrosis [Unknown]
  - Pain [Recovered/Resolved]
  - Angioedema [Unknown]
  - Pruritus [Recovering/Resolving]
  - Hypotension [Unknown]
  - Urticaria [Recovered/Resolved]
  - Tremor [Recovered/Resolved]
  - Dyspnoea [Unknown]

NARRATIVE: CASE EVENT DATE: 20150422
